FAERS Safety Report 26026898 (Version 1)
Quarter: 2025Q4

REPORT INFORMATION
  Report Type: Spontaneous
  Country: GB (occurrence: GB)
  Receive Date: 20251111
  Receipt Date: 20251111
  Transmission Date: 20260117
  Serious: Yes (Hospitalization, Other)
  Sender: SANOFI AVENTIS
  Company Number: GB-DialogSolutions-SAAVPROD-PI839501-C1

PATIENT
  Age: 69 Year
  Sex: Male

DRUGS (6)
  1. LEFLUNOMIDE [Suspect]
     Active Substance: LEFLUNOMIDE
     Indication: Vasculitis
     Dosage: UNK
  2. DICLOFENAC [Concomitant]
     Active Substance: DICLOFENAC
     Indication: Episcleritis
     Dosage: UNK
  3. METHYLPREDNISOLONE [Concomitant]
     Active Substance: METHYLPREDNISOLONE
     Indication: Vasculitis
     Dosage: UNK (HIGH-DOSE)
  4. PREDNISOLONE [Concomitant]
     Active Substance: PREDNISOLONE
     Indication: Vasculitis
     Dosage: UNK
     Route: 048
  5. METHOTREXATE [Concomitant]
     Active Substance: METHOTREXATE
     Indication: Vasculitis
     Dosage: 25 MG, QW
  6. FOLIC ACID [Concomitant]
     Active Substance: FOLIC ACID
     Indication: Mean cell volume increased
     Dosage: UNK UNK, TIW

REACTIONS (2)
  - Chronic obstructive pulmonary disease [Unknown]
  - Pneumonia [Unknown]
